FAERS Safety Report 13849585 (Version 4)
Quarter: 2019Q1

REPORT INFORMATION
  Report Type: Spontaneous
  Country: JP (occurrence: JP)
  Receive Date: 20170809
  Receipt Date: 20190306
  Transmission Date: 20190417
  Serious: Yes (Hospitalization)
  Sender: FDA-Public Use
  Company Number: PHJP2017JP025148

PATIENT
  Age: 49 Year
  Sex: Female
  Weight: 68 kg

DRUGS (15)
  1. COSENTYX [Suspect]
     Active Substance: SECUKINUMAB
     Dosage: 300 MG, UNK
     Route: 058
     Dates: start: 20170817
  2. CYMBALTA [Concomitant]
     Active Substance: DULOXETINE HYDROCHLORIDE
     Indication: PRODUCT USED FOR UNKNOWN INDICATION
     Dosage: UNK
     Route: 065
  3. PYDOXAL [Concomitant]
     Active Substance: PYRIDOXAL
     Indication: ANTIBIOTIC PROPHYLAXIS
     Dosage: 30 MG, BID
     Route: 048
     Dates: start: 20170706, end: 20180405
  4. LYRICA [Concomitant]
     Active Substance: PREGABALIN
     Indication: SPINAL OSTEOARTHRITIS
     Dosage: UNK
     Route: 048
  5. COSENTYX [Suspect]
     Active Substance: SECUKINUMAB
     Indication: PSORIASIS
     Dosage: 300 MG, UNK
     Route: 058
     Dates: start: 20170810
  6. ISCOTIN [Concomitant]
     Active Substance: ISONIAZID
     Indication: ANTIBIOTIC PROPHYLAXIS
     Dosage: 100 MG, TID
     Route: 048
     Dates: start: 20170706, end: 20180405
  7. XYZAL [Concomitant]
     Active Substance: LEVOCETIRIZINE DIHYDROCHLORIDE
     Indication: PSORIASIS
  8. MARDUOX [Concomitant]
     Active Substance: BETAMETHASONE BUTYRATE PROPIONATE\MAXACALCITOL
     Indication: PSORIASIS
  9. ALMETA [Concomitant]
     Active Substance: ALCLOMETASONE DIPROPIONATE
     Indication: RASH
     Dosage: SUFFICIENT QUANTITY, UNK
     Route: 061
     Dates: start: 20161208
  10. ALMETA [Concomitant]
     Active Substance: ALCLOMETASONE DIPROPIONATE
     Indication: PSORIASIS
  11. PROPETO [Concomitant]
     Indication: PSORIASIS
  12. MARDUOX [Concomitant]
     Active Substance: BETAMETHASONE BUTYRATE PROPIONATE\MAXACALCITOL
     Indication: RASH
     Dosage: SUFFICIENT QUANTITY, UNK
     Route: 061
     Dates: start: 20161208
  13. COSENTYX [Suspect]
     Active Substance: SECUKINUMAB
     Indication: PSORIATIC ARTHROPATHY
     Dosage: 300 MG, UNK
     Route: 058
     Dates: start: 20170803
  14. XYZAL [Concomitant]
     Active Substance: LEVOCETIRIZINE DIHYDROCHLORIDE
     Indication: PRURITUS
     Dosage: 5 MG, QD
     Route: 048
     Dates: start: 20170728, end: 20170827
  15. PROPETO [Concomitant]
     Indication: RASH
     Dosage: SUFFICIENT QUANTITY, UNK
     Route: 061
     Dates: start: 20161208

REACTIONS (6)
  - Vomiting [Unknown]
  - Diarrhoea [Unknown]
  - Colitis ischaemic [Recovered/Resolved]
  - Haematochezia [Unknown]
  - Abdominal pain [Unknown]
  - Oedema mucosal [Unknown]

NARRATIVE: CASE EVENT DATE: 20170803
